APPROVED DRUG PRODUCT: NUTRILIPID 10%
Active Ingredient: SOYBEAN OIL
Strength: 10%
Dosage Form/Route: INJECTABLE;INJECTION
Application: N019531 | Product #001
Applicant: B BRAUN MEDICAL INC
Approved: May 28, 1993 | RLD: Yes | RS: No | Type: DISCN